FAERS Safety Report 17192574 (Version 1)
Quarter: 2019Q4

REPORT INFORMATION
  Report Type: Spontaneous
  Country: US (occurrence: US)
  Receive Date: 20191202
  Receipt Date: 20191202
  Transmission Date: 20200122
  Serious: Yes (Other)
  Sender: FDA-Public Use
  Company Number: None

PATIENT
  Age: 47 Year
  Sex: Female
  Weight: 92.97 kg

DRUGS (9)
  1. NORCO (HYDROCODONE BITARTRATE, PARACETAMOL) [Concomitant]
  2. SULFAMETHOXAZOLE (SULFAMETHOXAZOLE) [Concomitant]
  3. VISTARIL (HYDROXYZINE HYDROCHLORIDE) [Concomitant]
     Active Substance: HYDROXYZINE HYDROCHLORIDE
  4. AMOXICILLIN (AMOXICILLIN) [Concomitant]
     Active Substance: AMOXICILLIN
  5. VALACYCLOVIR (VALACICLOVIR) [Concomitant]
  6. HYDROCHLOROTHIAZIDE. [Concomitant]
     Active Substance: HYDROCHLOROTHIAZIDE
  7. BENZTROPHE (BENZTROPHE) [Concomitant]
  8. CREST WHITENING SYSTEM WHITING PASTE [Suspect]
     Active Substance: HYDROGEN PEROXIDE
     Indication: TOOTH DISCOLOURATION
     Route: 048
     Dates: start: 2016, end: 2016
  9. SEROQUEL [Concomitant]
     Active Substance: QUETIAPINE FUMARATE

REACTIONS (17)
  - Tooth loss [None]
  - Pain [None]
  - Gingival erythema [None]
  - Dental restoration failure [None]
  - Gingival bleeding [None]
  - Tooth discolouration [None]
  - Oral pain [None]
  - Gingival discomfort [None]
  - Tooth erosion [None]
  - Tooth fracture [None]
  - Hyperaesthesia teeth [None]
  - Mouth haemorrhage [None]
  - Gingival disorder [None]
  - Tooth disorder [None]
  - Tooth deposit [None]
  - Toothache [None]
  - Gingival pain [None]

NARRATIVE: CASE EVENT DATE: 2016
